FAERS Safety Report 6597166-4 (Version None)
Quarter: 2010Q1

REPORT INFORMATION
  Report Type: 
  Country: None (occurrence: None)
  Receive Date: 20100223
  Receipt Date: 20100217
  Transmission Date: 20100710
  Serious: Yes (Death, Hospitalization)
  Sender: FDA-Public Use
  Company Number: US-GILEAD-2009-0025709

PATIENT
  Sex: Female

DRUGS (13)
  1. LETAIRIS [Suspect]
     Indication: PULMONARY ARTERIAL HYPERTENSION
     Route: 048
     Dates: start: 20090901, end: 20091118
  2. LASIX [Concomitant]
  3. LISINOPRIL [Concomitant]
  4. AMLODIPINE [Concomitant]
  5. PLAVIX [Concomitant]
  6. FLEXERIL [Concomitant]
  7. LIPITOR [Concomitant]
  8. K-DUR [Concomitant]
  9. TEMAZEPAM [Concomitant]
  10. MOBIC [Concomitant]
  11. FISH OIL [Concomitant]
  12. MULTI-VITAMIN [Concomitant]
  13. TYLENOL-500 [Concomitant]

REACTIONS (2)
  - DIARRHOEA [None]
  - SEPSIS [None]
